FAERS Safety Report 6635535-4 (Version None)
Quarter: 2010Q1

REPORT INFORMATION
  Report Type: 
  Country: None (occurrence: None)
  Receive Date: 20100315
  Receipt Date: 20100223
  Transmission Date: 20100710
  Serious: Yes (Hospitalization)
  Sender: FDA-Public Use
  Company Number: US-ABBOTT-10P-163-0628068-00

PATIENT
  Weight: 103 kg

DRUGS (5)
  1. DEPAKOTE [Suspect]
     Indication: BIPOLAR I DISORDER
     Route: 048
     Dates: start: 19800101
  2. UNKNOWN MEDICATION [Suspect]
     Indication: DRUG USE FOR UNKNOWN INDICATION
  3. ABILIFY [Concomitant]
     Indication: BIPOLAR I DISORDER
     Route: 048
     Dates: start: 20060101
  4. LEXAPRO [Concomitant]
     Indication: DEPRESSION
     Route: 048
     Dates: start: 20060101
  5. BENADRYL [Concomitant]
     Indication: INSOMNIA
     Dates: start: 20090801

REACTIONS (1)
  - BIPOLAR DISORDER [None]
